FAERS Safety Report 4617237-9 (Version None)
Quarter: 2005Q1

REPORT INFORMATION
  Report Type: 
  Country: None (occurrence: None)
  Receive Date: 20050323
  Receipt Date: 20050310
  Transmission Date: 20050727
  Serious: Yes (Death, Hospitalization)
  Sender: FDA-Public Use
  Company Number: PHNR2005AU00623

PATIENT
  Sex: Female

DRUGS (4)
  1. ACETAMINOPHEN W/ CODEINE [Concomitant]
  2. MS CONTIN [Concomitant]
  3. ZOMETA [Suspect]
  4. FEMARA [Suspect]
     Indication: BREAST CANCER METASTATIC
     Dosage: 2.5 MG, QD
     Route: 048
     Dates: start: 20030425

REACTIONS (1)
  - DEATH [None]
